FAERS Safety Report 20823380 (Version 1)
Quarter: 2022Q2

REPORT INFORMATION
  Report Type: Other
  Country: US (occurrence: None)
  Receive Date: 20220513
  Receipt Date: 20220513
  Transmission Date: 20220721
  Serious: Yes (Hospitalization)
  Sender: FDA-Public Use
  Company Number: US-ROCHE-3093746

PATIENT
  Age: 58 Year
  Sex: Male
  Weight: 89.892 kg

DRUGS (4)
  1. OCREVUS [Suspect]
     Active Substance: OCRELIZUMAB
     Indication: Multiple sclerosis
     Dosage: 600 MG EVERY 6 MONTH
     Route: 042
  2. OXYGEN [Concomitant]
     Active Substance: OXYGEN
  3. PREDNISONE [Concomitant]
     Active Substance: PREDNISONE
  4. NEBULIZER (UNK INGREDIENTS) [Concomitant]

REACTIONS (3)
  - COVID-19 pneumonia [Recovered/Resolved]
  - Pneumonia [Recovered/Resolved]
  - Weight decreased [Unknown]

NARRATIVE: CASE EVENT DATE: 20200101
